FAERS Safety Report 21109069 (Version 1)
Quarter: 2022Q3

REPORT INFORMATION
  Report Type: Spontaneous
  Country: US (occurrence: US)
  Receive Date: 20220721
  Receipt Date: 20220721
  Transmission Date: 20221026
  Serious: No
  Sender: FDA-Public Use
  Company Number: US-drreddys-SPO/USA/22/0152183

PATIENT
  Age: 17 Year

DRUGS (3)
  1. ZENATANE [Suspect]
     Active Substance: ISOTRETINOIN
     Indication: Acne
     Dosage: RMA ISSUE DATE: 21 JANUARY 2022 11:22:01 AM, 02 JUNE 2022 08:37:19 AM
  2. ZENATANE [Suspect]
     Active Substance: ISOTRETINOIN
     Dosage: RMA ISSUE DATE: 23 FEBRUARY 2022 09:11:16 AM, 28 MARCH 2022 09:10:43 AM
  3. ZENATANE [Suspect]
     Active Substance: ISOTRETINOIN
     Dosage: RMA ISSUE DATE: 28 APRIL 2022 02:06:58 PM, 02 JUNE 2022 08:37:19 AM

REACTIONS (1)
  - Treatment noncompliance [Unknown]
